FAERS Safety Report 10796311 (Version 2)
Quarter: 2015Q2

REPORT INFORMATION
  Report Type: Spontaneous
  Country: US (occurrence: US)
  Receive Date: 20150216
  Receipt Date: 20150402
  Transmission Date: 20150821
  Serious: No
  Sender: FDA-Public Use
  Company Number: US-ASTRAZENECA-2015SE12874

PATIENT
  Age: 25490 Day
  Sex: Female
  Weight: 79.4 kg

DRUGS (1)
  1. PULMICORT FLEXHALER [Suspect]
     Active Substance: BUDESONIDE
     Indication: ASTHMA
     Dosage: 180MCG, TWO TIMES A DAY
     Route: 055
     Dates: start: 201412

REACTIONS (2)
  - Eye disorder [Unknown]
  - Malaise [Unknown]

NARRATIVE: CASE EVENT DATE: 20150129
